FAERS Safety Report 9771408 (Version 3)
Quarter: 2014Q1

REPORT INFORMATION
  Report Type: Report from Study
  Country: FR (occurrence: FR)
  Receive Date: 20131219
  Receipt Date: 20140129
  Transmission Date: 20141002
  Serious: Yes (Hospitalization)
  Sender: FDA-Public Use
  Company Number: FR-ROCHE-1160623

PATIENT
  Age: 18 Year
  Sex: Male

DRUGS (7)
  1. RITUXIMAB [Suspect]
     Indication: RHEUMATOID ARTHRITIS
     Route: 041
     Dates: start: 20070821
  2. RITUXIMAB [Suspect]
     Route: 041
     Dates: start: 20070904
  3. RITUXIMAB [Suspect]
     Route: 041
     Dates: start: 20080805
  4. RITUXIMAB [Suspect]
     Route: 041
     Dates: start: 20080825
  5. RITUXIMAB [Suspect]
     Route: 041
     Dates: start: 20111114
  6. RITUXIMAB [Suspect]
     Route: 041
     Dates: start: 20111129
  7. CORTANCYL [Concomitant]
     Route: 065

REACTIONS (9)
  - Bronchopneumonia [Recovered/Resolved]
  - General physical health deterioration [Not Recovered/Not Resolved]
  - Weight decreased [Not Recovered/Not Resolved]
  - Asthenia [Not Recovered/Not Resolved]
  - Forearm fracture [Recovered/Resolved]
  - Abdominal pain [Recovered/Resolved]
  - Headache [Not Recovered/Not Resolved]
  - Vestibular disorder [Not Recovered/Not Resolved]
  - Vertigo [Not Recovered/Not Resolved]
